FAERS Safety Report 7621143-5 (Version None)
Quarter: 2011Q3

REPORT INFORMATION
  Report Type: 
  Country: None (occurrence: None)
  Receive Date: 20110719
  Receipt Date: 20110713
  Transmission Date: 20111222
  Serious: Yes (Death, Hospitalization, Other)
  Sender: FDA-Public Use
  Company Number: PHNU2007DE02365

PATIENT
  Sex: Male
  Weight: 87 kg

DRUGS (15)
  1. ZOMETA [Suspect]
     Indication: METASTASES TO BONE
     Dosage: 4 MG, EVERY 4 WEEKS
     Route: 065
     Dates: start: 20070306, end: 20071201
  2. LEVOTHYROXINE SODIUM [Concomitant]
     Dosage: 200 UG, QD
     Route: 048
  3. OXYCODONE HCL [Concomitant]
     Dosage: UNK UKN, UNK
     Route: 065
  4. METOPROLOL TARTRATE [Concomitant]
     Dosage: 50 MG, UNK
     Route: 048
  5. VOLTAREN [Concomitant]
     Dosage: 1 DF, DAILY
     Route: 048
  6. AMLODIPINE [Concomitant]
     Dosage: 10 MG, UNK
     Route: 048
  7. AMITRIPTYLINE HCL [Concomitant]
     Dosage: UNK UKN, UNK
     Route: 065
  8. VINBLASTINE SULFATE [Concomitant]
     Dosage: 6 MG, UNK
     Dates: start: 20070906, end: 20071018
  9. MOVIPREP [Concomitant]
     Dosage: UNK UKN, UNK
     Route: 065
  10. NALOXONE [Concomitant]
     Dosage: UNK UKN, UNK
     Route: 065
  11. DIOVAN HCT [Concomitant]
     Dosage: 1 DF, UNK
     Route: 048
  12. DEXAMETHASONE [Concomitant]
     Dosage: 1 MG, QD
     Route: 065
  13. NOVAMINE [Concomitant]
     Dosage: 120 DRP, DAILY
     Route: 048
  14. DURAGESIC-100 [Concomitant]
     Dosage: 50 UG/H REPLACED EVERY 3 DAYS
     Route: 065
  15. NEXIUM [Concomitant]
     Dosage: 40 MG, QD
     Route: 065

REACTIONS (10)
  - METASTASES TO BONE [None]
  - BONE PAIN [None]
  - HAEMATOMA [None]
  - BONE LESION [None]
  - OSTEONECROSIS OF JAW [None]
  - PAIN IN EXTREMITY [None]
  - NEOPLASM MALIGNANT [None]
  - GENERAL PHYSICAL HEALTH DETERIORATION [None]
  - PARAESTHESIA [None]
  - BACK PAIN [None]
